FAERS Safety Report 24280202 (Version 1)
Quarter: 2024Q3

REPORT INFORMATION
  Report Type: Spontaneous
  Country: ES (occurrence: ES)
  Receive Date: 20240904
  Receipt Date: 20240904
  Transmission Date: 20241017
  Serious: Yes (Hospitalization, Other)
  Sender: AUROBINDO
  Company Number: ES-AEMPS-1563662

PATIENT
  Age: 72 Year
  Sex: Male
  Weight: 96.4 kg

DRUGS (2)
  1. AMOXICILLIN\CLAVULANIC ACID [Suspect]
     Active Substance: AMOXICILLIN\CLAVULANIC ACID
     Indication: Surgery
     Dosage: 1 DOSAGE FORM, 3 TIMES A DAY (875/125 MG EVERY 8H)
     Route: 048
     Dates: start: 20240614, end: 20240617
  2. METAMIZOL [Concomitant]
     Active Substance: METAMIZOLE SODIUM
     Indication: Surgery
     Dosage: UNK
     Route: 065

REACTIONS (2)
  - Cellulitis [Recovering/Resolving]
  - Erythema [Recovering/Resolving]

NARRATIVE: CASE EVENT DATE: 20240616
